FAERS Safety Report 8314346-8 (Version None)
Quarter: 2012Q2

REPORT INFORMATION
  Report Type: 
  Country: None (occurrence: None)
  Receive Date: 20120426
  Receipt Date: 20080520
  Transmission Date: 20120825
  Serious: Yes (Other)
  Sender: FDA-Public Use
  Company Number: US-TEVA-US023592

PATIENT
  Sex: Male
  Weight: 107 kg

DRUGS (8)
  1. PROVIGIL [Suspect]
     Indication: SLEEP APNOEA SYNDROME
     Dosage: 200 MILLIGRAM;
     Route: 048
     Dates: start: 20060501
  2. AMBIEN [Concomitant]
     Indication: SLEEP DISORDER
     Route: 048
  3. TRIAMTERENE [Concomitant]
     Indication: FLUID RETENTION
     Dosage: 37.5/25 MG
     Route: 048
  4. DARVOCET [Concomitant]
     Indication: BACK PAIN
     Route: 048
  5. AMIODARONE HCL [Concomitant]
     Indication: CARDIAC DISORDER
     Dosage: 300 MILLIGRAM; 1.5 TABS
     Route: 048
  6. HYZAAR [Concomitant]
     Indication: CARDIAC DISORDER
     Dosage: 1.5 TABS
     Route: 048
  7. CARVEDILOL [Concomitant]
     Indication: CARDIAC DISORDER
     Dosage: 6.25 MILLIGRAM;
     Route: 048
  8. XANAX [Concomitant]
     Route: 065
     Dates: start: 20080501

REACTIONS (4)
  - BLISTER [None]
  - PERSONALITY DISORDER [None]
  - RASH MACULO-PAPULAR [None]
  - LOSS OF CONSCIOUSNESS [None]
